FAERS Safety Report 4725114-8 (Version None)
Quarter: 2005Q3

REPORT INFORMATION
  Report Type: 
  Country: None (occurrence: None)
  Receive Date: 20050722
  Receipt Date: 20050711
  Transmission Date: 20060218
  Serious: Yes (Hospitalization, Other)
  Sender: FDA-Public Use
  Company Number: 2005BI010464

PATIENT
  Sex: Female

DRUGS (21)
  1. AVONEX [Suspect]
     Indication: MULTIPLE SCLEROSIS
     Dosage: 30 UG; QW IM
     Route: 030
     Dates: start: 20030101
  2. AVONEX [Suspect]
     Indication: MULTIPLE SCLEROSIS
     Dosage: 30 UG; QW IM
     Route: 030
     Dates: start: 20040801
  3. METHADONE (METHADONE) [Concomitant]
  4. MORPHINE [Concomitant]
  5. PREDNISONE [Concomitant]
  6. CYMBALTA (ANTIDEPRESSANTS) [Concomitant]
  7. ZANAFLEX [Concomitant]
  8. PROMETHAZINE [Concomitant]
  9. ALBUTEROL [Concomitant]
  10. FORADIL [Concomitant]
  11. SINGULAIR [Concomitant]
  12. ATROVENT [Concomitant]
  13. PULMICORT [Concomitant]
  14. PATANOL [Concomitant]
  15. NEXIUM [Concomitant]
  16. ALFALFA COMPLEX (MEDICAGO SATIVA) [Concomitant]
  17. SUPER CALCIUM (CALCIUM) [Concomitant]
  18. MAGNESIUM PLUS (MAGNESIUM) [Concomitant]
  19. VITAMIN E [Concomitant]
  20. GARLIC COMPLEX (ALLIUM SATIVUM) [Concomitant]
  21. HERB LAXATIVE (HERBAL PREPARATION) [Concomitant]

REACTIONS (12)
  - ASTHMA [None]
  - BACK PAIN [None]
  - COLONIC OBSTRUCTION [None]
  - DEPRESSION [None]
  - GASTRITIS EROSIVE [None]
  - GASTROOESOPHAGEAL REFLUX DISEASE [None]
  - HEADACHE [None]
  - HIATUS HERNIA [None]
  - NEUROPATHIC PAIN [None]
  - PEPTIC ULCER [None]
  - PITUITARY TUMOUR [None]
  - SHOULDER PAIN [None]
